FAERS Safety Report 5485960-2 (Version None)
Quarter: 2007Q4

REPORT INFORMATION
  Report Type: 
  Country: None (occurrence: None)
  Receive Date: 20071012
  Receipt Date: 20071005
  Transmission Date: 20080405
  Serious: Yes (Death, Life-Threatening, Hospitalization)
  Sender: FDA-Public Use
  Company Number: 028-21880-07100412

PATIENT
  Age: 70 Year
  Sex: Female

DRUGS (4)
  1. REVLIMID [Suspect]
     Indication: 5Q-SYNDROME
     Dosage: 10 MG, 2 IN 1 D, ORAL; 2 MG, DAILY, ORAL
     Route: 048
     Dates: start: 20070901, end: 20070901
  2. REVLIMID [Suspect]
     Indication: 5Q-SYNDROME
     Dosage: 10 MG, 2 IN 1 D, ORAL; 2 MG, DAILY, ORAL
     Route: 048
     Dates: start: 20070801
  3. REVLIMID [Suspect]
  4. PAMIDRONATE DISODIUM [Concomitant]

REACTIONS (3)
  - PERICARDITIS [None]
  - PNEUMONIA [None]
  - SEPSIS [None]
